FAERS Safety Report 22518432 (Version 1)
Quarter: 2023Q2

REPORT INFORMATION
  Report Type: Spontaneous
  Country: US (occurrence: US)
  Receive Date: 20230605
  Receipt Date: 20230605
  Transmission Date: 20230722
  Serious: Yes (Hospitalization)
  Sender: FDA-Public Use
  Company Number: US-SA-SAC20230602000444

PATIENT
  Age: 13 Year
  Sex: Male

DRUGS (2)
  1. ELOCTATE [Suspect]
     Active Substance: EFMOROCTOCOG ALFA
     Indication: Factor VIII deficiency
     Dosage: 2100 UNITS , FREQUENCY: TUESDAYS AND FRIDAYS
     Route: 042
     Dates: start: 202212
  2. ELOCTATE [Suspect]
     Active Substance: EFMOROCTOCOG ALFA
     Indication: Factor VIII deficiency
     Dosage: 2100 UNITS , FREQUENCY: TUESDAYS AND FRIDAYS
     Route: 042
     Dates: start: 202212

REACTIONS (1)
  - Turbinectomy [Unknown]

NARRATIVE: CASE EVENT DATE: 20230526
